FAERS Safety Report 23943145 (Version 2)
Quarter: 2024Q2

REPORT INFORMATION
  Report Type: Spontaneous
  Country: AE (occurrence: AE)
  Receive Date: 20240605
  Receipt Date: 20240614
  Transmission Date: 20240716
  Serious: Yes (Other)
  Sender: FDA-Public Use
  Company Number: AE-ABBVIE-5787335

PATIENT
  Age: 28 Year
  Sex: Female

DRUGS (1)
  1. BOTOX [Suspect]
     Active Substance: ONABOTULINUMTOXINA
     Indication: Product used for unknown indication
     Dosage: TIME INTERVAL: AS NECESSARY
     Route: 065

REACTIONS (10)
  - Loss of consciousness [Unknown]
  - Dyspnoea [Unknown]
  - Eye colour change [Unknown]
  - Nail discolouration [Unknown]
  - Seizure [Unknown]
  - Cerebrovascular accident [Unknown]
  - Hypersensitivity [Unknown]
  - Oral mucosal discolouration [Unknown]
  - Syncope [Unknown]
  - Pallor [Unknown]
